FAERS Safety Report 8064427-1 (Version None)
Quarter: 2011Q4

REPORT INFORMATION
  Report Type: 
  Country: None (occurrence: None)
  Receive Date: 20111221
  Receipt Date: 20110726
  Transmission Date: 20120403
  Serious: Yes (Other)
  Sender: FDA-Public Use
  Company Number: PHHY2011US55103

PATIENT
  Age: 52 Year
  Sex: Female
  Weight: 70 kg

DRUGS (3)
  1. EXJADE [Suspect]
     Indication: IRON OVERLOAD
     Dosage: 1625 MG, QD, ORAL
     Route: 048
     Dates: start: 20100201
  2. EXJADE [Suspect]
     Indication: ANAEMIA HAEMOLYTIC AUTOIMMUNE
     Dosage: 1625 MG, QD, ORAL
     Route: 048
     Dates: start: 20100201
  3. TYKERB (LAPATINIB DITOSYLATE) [Concomitant]

REACTIONS (1)
  - DIARRHOEA [None]
